FAERS Safety Report 16582248 (Version 1)
Quarter: 2019Q3

REPORT INFORMATION
  Report Type: Spontaneous
  Country: CN (occurrence: CN)
  Receive Date: 20190717
  Receipt Date: 20190717
  Transmission Date: 20191004
  Serious: Yes (Death, Other)
  Sender: FDA-Public Use
  Company Number: CN-JNJFOC-20190638565

PATIENT

DRUGS (1)
  1. MOTRIN INFANTS [Suspect]
     Active Substance: IBUPROFEN
     Indication: PATENT DUCTUS ARTERIOSUS
     Dosage: MOTRIN INFANTS SUSPENSION/FEVER DROPS 15 ML
     Route: 048

REACTIONS (12)
  - Intraventricular haemorrhage [Unknown]
  - Cerebral haemorrhage [Unknown]
  - Product use issue [Unknown]
  - Bronchopulmonary dysplasia [Unknown]
  - Off label use [Unknown]
  - Upper gastrointestinal haemorrhage [Unknown]
  - Death [Fatal]
  - Product use in unapproved indication [Unknown]
  - Renal failure [Unknown]
  - Therapeutic response unexpected [Unknown]
  - Feeding intolerance [Unknown]
  - Necrotising colitis [Unknown]
